FAERS Safety Report 14199847 (Version 1)
Quarter: 2017Q4

REPORT INFORMATION
  Report Type: Spontaneous
  Country: DE (occurrence: DE)
  Receive Date: 20171117
  Receipt Date: 20171117
  Transmission Date: 20180321
  Serious: Yes (Life-Threatening, Other)
  Sender: FDA-Public Use
  Company Number: DE-AMGEN-DEUSP2017172190

PATIENT
  Sex: Female

DRUGS (10)
  1. RASILEZ [Concomitant]
     Active Substance: ALISKIREN
     Dosage: 300 MG, QD
  2. EFIENT [Concomitant]
     Active Substance: PRASUGREL HYDROCHLORIDE
     Dosage: 10 MG, QD
  3. DEKRISTOL [Concomitant]
     Active Substance: CHOLECALCIFEROL
     Dosage: 20000 IU, QWK
  4. LIMPTAR [Concomitant]
     Active Substance: AMINOPHYLLINE\QUININE SULFATE
     Dosage: UNK UNK, AS NECESSARY
  5. REPATHA [Suspect]
     Active Substance: EVOLOCUMAB
     Indication: TYPE IIA HYPERLIPIDAEMIA
     Dosage: UNK
     Route: 058
  6. ELIQUIS [Concomitant]
     Active Substance: APIXABAN
     Dosage: 2.5 MG, BID
  7. NOVALGIN [Concomitant]
     Active Substance: METAMIZOLE SODIUM
     Dosage: 20-30 DROPS IN THE EVENT OF PAINS MAXIMUM 4 X DAILY
  8. CALCIUMGLUCONAT [Concomitant]
     Dosage: 4 AMPOULES DURING LIPOPROTEIN APHERESIS
     Route: 042
  9. LUMIGAN [Concomitant]
     Active Substance: BIMATOPROST
     Dosage: 0.1 MG/ML, QD
  10. PARACODIN [Concomitant]
     Active Substance: DIHYDROCODEINE BITARTRATE
     Dosage: 15 - 20 DROPS

REACTIONS (7)
  - Malaise [Recovering/Resolving]
  - Hypertension [Recovering/Resolving]
  - Restlessness [Recovering/Resolving]
  - Hypertensive crisis [Recovering/Resolving]
  - Cold sweat [Recovering/Resolving]
  - Anxiety [Recovering/Resolving]
  - Head discomfort [Recovering/Resolving]
